FAERS Safety Report 22112277 (Version 1)
Quarter: 2023Q1

REPORT INFORMATION
  Report Type: Report from Study
  Country: US (occurrence: US)
  Receive Date: 20230318
  Receipt Date: 20230318
  Transmission Date: 20230417
  Serious: Yes (Hospitalization, Other)
  Sender: FDA-Public Use
  Company Number: US-UCBSA-2023014127

PATIENT
  Age: 0 Year
  Sex: Male
  Weight: 2.22 kg

DRUGS (13)
  1. CERTOLIZUMAB PEGOL [Suspect]
     Active Substance: CERTOLIZUMAB PEGOL
     Indication: Rheumatoid arthritis
     Dosage: 200 MILLIGRAM, 2X/MONTH
     Route: 064
     Dates: start: 20200720, end: 20210622
  2. BETAMETHASONE [Concomitant]
     Active Substance: BETAMETHASONE
     Indication: Product used for unknown indication
     Dosage: 1 SHOT
     Dates: start: 20210601, end: 20210621
  3. BETAMETHASONE [Concomitant]
     Active Substance: BETAMETHASONE
     Dosage: 1 SHOT
     Dates: start: 20210621, end: 20210622
  4. HYDROXYCHLOROQUINE SULFATE [Concomitant]
     Active Substance: HYDROXYCHLOROQUINE SULFATE
     Indication: Rheumatoid arthritis
     Dosage: 400 MILLIGRAM
     Route: 064
     Dates: start: 20200315, end: 20210622
  5. MINERALS\VITAMINS [Concomitant]
     Active Substance: MINERALS\VITAMINS
     Indication: Product used for unknown indication
     Dosage: 1 PILL ONE DAY
     Route: 064
     Dates: start: 20201120, end: 20210131
  6. MINERALS\VITAMINS [Concomitant]
     Active Substance: MINERALS\VITAMINS
     Dosage: 3 PILL ONE DAY
     Route: 064
     Dates: start: 20210201, end: 20210622
  7. UNISOM SLEEPMELTS [Concomitant]
     Active Substance: DIPHENHYDRAMINE HYDROCHLORIDE
     Indication: Nausea
     Dosage: 0.5 PILL
     Route: 064
     Dates: start: 20210325, end: 20210622
  8. VITAMIN B6 [Concomitant]
     Active Substance: PYRIDOXINE HYDROCHLORIDE
     Indication: Nausea
     Dosage: 100 MILLIGRAM
     Route: 064
     Dates: start: 20210325, end: 20210622
  9. PFIZER-BIONTECH COVID-19 VACCINE [Concomitant]
     Active Substance: TOZINAMERAN
     Indication: Product used for unknown indication
     Dosage: 1ST SHOT
     Route: 064
     Dates: start: 20210124, end: 20210124
  10. PFIZER-BIONTECH COVID-19 VACCINE [Concomitant]
     Active Substance: TOZINAMERAN
     Dosage: 2ND SHOT
     Route: 064
     Dates: start: 20210214, end: 20210214
  11. FOLIC ACID [Concomitant]
     Active Substance: FOLIC ACID
     Indication: Pregnancy
     Dosage: 1 MILLIGRAM
     Dates: start: 20210101, end: 20210622
  12. IRON [Concomitant]
     Active Substance: IRON
     Indication: Supplementation therapy
     Dosage: 65 MILLIGRAM, ONCE DAILY (QD)
     Route: 064
     Dates: start: 20201101, end: 20210131
  13. ONDANSETRON [Concomitant]
     Active Substance: ONDANSETRON
     Indication: Nausea
     Dosage: 8 MILLIGRAM
     Route: 064
     Dates: start: 20210101, end: 20210324

REACTIONS (5)
  - Placental transfusion syndrome [Recovering/Resolving]
  - Premature baby [Unknown]
  - Low birth weight baby [Unknown]
  - Maternal exposure before pregnancy [Unknown]
  - Maternal exposure during pregnancy [Unknown]

NARRATIVE: CASE EVENT DATE: 20210301
